FAERS Safety Report 23752889 (Version 1)
Quarter: 2024Q2

REPORT INFORMATION
  Report Type: Spontaneous
  Country: NL (occurrence: NL)
  Receive Date: 20240417
  Receipt Date: 20240417
  Transmission Date: 20240715
  Serious: Yes (Hospitalization)
  Sender: FDA-Public Use
  Company Number: None

PATIENT
  Age: 62 Year
  Sex: Female
  Weight: 87 kg

DRUGS (10)
  1. OXALIPLATIN [Suspect]
     Active Substance: OXALIPLATIN
     Indication: Colon cancer
     Dosage: 250MG (IV 260.9 ML/H) 1X PER 4WK FOR 4X
     Dates: start: 20240122, end: 20240329
  2. APIXABAN TABLET 5MG / Brand name not specified [Concomitant]
     Indication: Product used for unknown indication
     Dosage: TABLET, 5 MG (MILLIGRAM)
  3. GRANISETRON INJVLST 1MG/ML / Brand name not specified [Concomitant]
     Indication: Product used for unknown indication
     Dosage: INJECTIEVLOEISTOF, 1 MG/ML (MILLIGRAM PER MILLILITER)
  4. DEXAMETHASON TABLET  4MG / Brand name not specified [Concomitant]
     Indication: Product used for unknown indication
     Dosage: TABLET, 4 MG (MILLIGRAM)
  5. CAPECITABINE [Concomitant]
     Active Substance: CAPECITABINE
     Indication: Product used for unknown indication
     Dosage: 500MG 2DD 3 STKS 2WEKEN
  6. CAPECITABINE [Concomitant]
     Active Substance: CAPECITABINE
     Indication: Product used for unknown indication
     Dosage: FILM ENCASED TABLET, 150 MG (MILLIGRAM)
  7. METOCLOPRAMIDE [Concomitant]
     Active Substance: METOCLOPRAMIDE
     Indication: Product used for unknown indication
     Dosage: TABLET, 10 MG (MILLIGRAM)
  8. SPIRONOLACTON TABLET 25MG / Brand name not specified [Concomitant]
     Indication: Product used for unknown indication
     Dosage: TABLET, 25 MG (MILLIGRAM)
  9. SUMATRIPTAN DISPERTABLET 100MG / IMIGRAN FTAB DISPERGEERBARE TABLET 10 [Concomitant]
     Indication: Product used for unknown indication
     Dosage: INDIEN NODIG 10MG 2DD
  10. FUROSEMIDE TABLET 20MG / Brand name not specified [Concomitant]
     Indication: Product used for unknown indication
     Dosage: TABLET, 20 MG (MILLIGRAM)

REACTIONS (1)
  - Hepatitis acute [Recovering/Resolving]
